FAERS Safety Report 7578349-3 (Version None)
Quarter: 2011Q2

REPORT INFORMATION
  Report Type: 
  Country: None (occurrence: None)
  Receive Date: 20110628
  Receipt Date: 20110621
  Transmission Date: 20111010
  Serious: Yes (Death)
  Sender: FDA-Public Use
  Company Number: GB-CELGENEUS-167-20785-11062973

PATIENT

DRUGS (3)
  1. DEXAMETHASONE [Suspect]
     Indication: MULTIPLE MYELOMA
     Dosage: 20 MILLIGRAM
     Route: 065
  2. THALIDOMIDE [Suspect]
     Indication: MULTIPLE MYELOMA
     Dosage: 100 MILLIGRAM
     Route: 048
  3. BENDAMUSTINE [Suspect]
     Indication: MULTIPLE MYELOMA
     Dosage: 120 MILLIGRAM
     Route: 051

REACTIONS (20)
  - DISEASE PROGRESSION [None]
  - LUNG ADENOCARCINOMA [None]
  - DEATH [None]
  - NAUSEA [None]
  - MUSCLE SPASMS [None]
  - FATIGUE [None]
  - SEPSIS [None]
  - DYSPNOEA [None]
  - CONSTIPATION [None]
  - EPISTAXIS [None]
  - AGGRESSION [None]
  - SOMNOLENCE [None]
  - TREMOR [None]
  - PARAESTHESIA [None]
  - INFECTION [None]
  - DEPRESSED MOOD [None]
  - THROMBOCYTOPENIA [None]
  - ANAEMIA [None]
  - NEUTROPENIA [None]
  - HYPERKALAEMIA [None]
